FAERS Safety Report 18777669 (Version 1)
Quarter: 2021Q1

REPORT INFORMATION
  Report Type: Spontaneous
  Country: US (occurrence: US)
  Receive Date: 20210123
  Receipt Date: 20210123
  Transmission Date: 20210419
  Serious: Yes (Other)
  Sender: FDA-Public Use
  Company Number: US-CADILA HEALTHCARE LIMITED-US-ZYDUS-061102

PATIENT

DRUGS (1)
  1. BACLOFEN 10 MILLIGRAM TABLET [Suspect]
     Active Substance: BACLOFEN
     Indication: PAIN IN EXTREMITY
     Dosage: 10 MILLIGRAM, BID
     Route: 065

REACTIONS (1)
  - Neurotoxicity [Unknown]
